FAERS Safety Report 8160577-X (Version None)
Quarter: 2012Q1

REPORT INFORMATION
  Report Type: 
  Country: None (occurrence: None)
  Receive Date: 20120223
  Receipt Date: 20120209
  Transmission Date: 20120608
  Serious: Yes (Hospitalization)
  Sender: FDA-Public Use
  Company Number: CHPA2012US002890

PATIENT
  Age: 47 Year
  Sex: Female

DRUGS (1)
  1. EXCEDRIN (MIGRAINE) [Suspect]
     Indication: MIGRAINE
     Dosage: 2 DF, UP TO TID PRN
     Route: 048
     Dates: end: 20120122

REACTIONS (6)
  - HYPOAESTHESIA [None]
  - HYPOTENSION [None]
  - OVERDOSE [None]
  - CHEST PAIN [None]
  - DRUG INEFFECTIVE [None]
  - MYOCARDIAL INFARCTION [None]
